FAERS Safety Report 20386959 (Version 1)
Quarter: 2022Q1

REPORT INFORMATION
  Report Type: Report from Study
  Country: CA (occurrence: CA)
  Receive Date: 20220127
  Receipt Date: 20220127
  Transmission Date: 20220423
  Serious: Yes (Hospitalization, Other)
  Sender: FDA-Public Use
  Company Number: CA-ABBVIE-22K-028-4250697-00

PATIENT
  Age: 77 Year
  Sex: Male

DRUGS (3)
  1. VENCLEXTA [Suspect]
     Active Substance: VENETOCLAX
     Indication: Acute myeloid leukaemia
     Dosage: DAY 1
     Route: 048
     Dates: start: 20220105, end: 20220105
  2. VENCLEXTA [Suspect]
     Active Substance: VENETOCLAX
     Dosage: DAY 2
     Route: 048
     Dates: start: 20220106, end: 20220106
  3. VENCLEXTA [Suspect]
     Active Substance: VENETOCLAX
     Dosage: DAYS 3-28
     Route: 048
     Dates: start: 20220107

REACTIONS (3)
  - Transfusion [Unknown]
  - Hospitalisation [Recovering/Resolving]
  - Laboratory test abnormal [Unknown]

NARRATIVE: CASE EVENT DATE: 20220101
